FAERS Safety Report 12532143 (Version 1)
Quarter: 2016Q3

REPORT INFORMATION
  Report Type: Report from Study
  Country: US (occurrence: US)
  Receive Date: 20160706
  Receipt Date: 20160706
  Transmission Date: 20161109
  Serious: Yes (Other)
  Sender: FDA-Public Use
  Company Number: US-ABBVIE-16K-163-1663861-00

PATIENT
  Sex: Male

DRUGS (1)
  1. HUMIRA [Suspect]
     Active Substance: ADALIMUMAB
     Indication: ANKYLOSING SPONDYLITIS
     Route: 058
     Dates: start: 20160325

REACTIONS (4)
  - Ligament rupture [Recovering/Resolving]
  - Drug effect decreased [Unknown]
  - Drug ineffective [Unknown]
  - Tendon injury [Recovering/Resolving]

NARRATIVE: CASE EVENT DATE: 2016
